FAERS Safety Report 5261357-5 (Version None)
Quarter: 2007Q1

REPORT INFORMATION
  Report Type: 
  Country: None (occurrence: None)
  Receive Date: 20070307
  Receipt Date: 20070221
  Transmission Date: 20070707
  Serious: Yes (Hospitalization)
  Sender: FDA-Public Use
  Company Number: 2006PV027220

PATIENT
  Age: 52 Year
  Sex: Male

DRUGS (21)
  1. BYETTA [Suspect]
     Indication: DIABETES MELLITUS NON-INSULIN-DEPENDENT
     Dosage: SEE IMAGE
     Route: 058
     Dates: start: 20050601, end: 20050701
  2. BYETTA [Suspect]
     Indication: DIABETES MELLITUS NON-INSULIN-DEPENDENT
     Dosage: SEE IMAGE
     Route: 058
     Dates: start: 20050701
  3. HUMULIN 70/30 [Concomitant]
  4. REGULAR INSULIN [Concomitant]
  5. GLYBURIDE [Concomitant]
  6. FUROSEMIDE [Concomitant]
  7. OXYGEN THERAPY [Concomitant]
  8. AMITRIPTYLINE HCL [Concomitant]
  9. SIMVASTATIN [Concomitant]
  10. PRILOSEC [Concomitant]
  11. GABAPENTIN [Concomitant]
  12. MIDODRINE [Concomitant]
  13. CALCIUM [Concomitant]
  14. VITAMIN D [Concomitant]
  15. FERROUS SULFATE [Concomitant]
  16. CYMBALTA [Concomitant]
  17. HYDROCODONE [Concomitant]
  18. CLARITIN [Concomitant]
  19. TOPAMAX [Concomitant]
  20. EPOGEN [Concomitant]
  21. LOPERAMIDE HCL [Concomitant]

REACTIONS (4)
  - CATHETER RELATED INFECTION [None]
  - DECREASED APPETITE [None]
  - PNEUMONIA [None]
  - SEPSIS [None]
